FAERS Safety Report 10146375 (Version 5)
Quarter: 2014Q3

REPORT INFORMATION
  Report Type: Report from Study
  Country: BE (occurrence: None)
  Receive Date: 20140429
  Receipt Date: 20140730
  Transmission Date: 20150326
  Serious: Yes (Other)
  Sender: FDA-Public Use
  Company Number: 2014BE003209

PATIENT
  Age: 77 Year
  Sex: Female
  Weight: 76 kg

DRUGS (22)
  1. DAFALGAN (PARACETAMOL) [Concomitant]
  2. XANAX [Concomitant]
     Active Substance: ALPRAZOLAM
  3. PLAVIX [Concomitant]
     Active Substance: CLOPIDOGREL BISULFATE
  4. BETARSEC (BETAHISTINE HYDROCHLORIDE) [Concomitant]
  5. ZANIDIP (LERCANIDIPINE HYDROCHLORIDE) (LERCANIDIPINE [Concomitant]
     Active Substance: LERCANIDIPINE HYDROCHLORIDE
  6. PROMAGNOR (MAGNESIUM, MAGNESIUM CARBONATE, MAGNESIUM CITRATE, MAGNESIUM PHOSPHATE) [Concomitant]
  7. ASAFLOW (ACETYLSALICYLIC ACID) [Concomitant]
  8. TEMESTA (LORAZEPAM) [Concomitant]
     Active Substance: LORAZEPAM
  9. PICOSULFATE (SODIUM PICOSULFATE) [Concomitant]
  10. SWEET ALMOND OIL (SWEET ALMOND OIL) [Concomitant]
  11. LORMETAZEPAM ACTAVIS (LORMETAZEPAM) [Concomitant]
  12. OMEPRAZOLE SODIUM (OMEPRAZOLE SODIUM) [Concomitant]
  13. LACTULOSA (LACTULOSE) [Concomitant]
  14. PRAXILENE (NAFTIDROFURYL OXALATE) [Concomitant]
  15. MOXONIDINE EG (MOXONIDINE) [Concomitant]
  16. SIPRALEXA (ESCITALOPRAM OXALATE) [Concomitant]
  17. DYTENZIDE (HYDROCHLOROTHIAZIDE, TRIAMTERENE) [Concomitant]
  18. MOVICOL (MACROGOL 3350, POTASSIUM CHLORIDE, SODIUM BICARBONATE, SODIUM CHLORIDE) [Concomitant]
  19. ALLOPURINOL SODIUM (ALLOPURINOL SODIUM) [Concomitant]
  20. PONATINIB [Suspect]
     Active Substance: PONATINIB
     Indication: CHRONIC MYELOID LEUKAEMIA
     Route: 048
     Dates: start: 20110427
  21. NOBITEN (NEBIVOLOL) [Concomitant]
  22. LOSARTAN (LOSARTAN) [Concomitant]
     Active Substance: LOSARTAN

REACTIONS (5)
  - Arteritis [None]
  - Femoral artery occlusion [None]
  - Skin ulcer [None]
  - Condition aggravated [None]
  - Renal artery stenosis [None]

NARRATIVE: CASE EVENT DATE: 20140320
